FAERS Safety Report 5319674-6 (Version None)
Quarter: 2007Q2

REPORT INFORMATION
  Report Type: 
  Country: None (occurrence: None)
  Receive Date: 20070508
  Receipt Date: 20070504
  Transmission Date: 20071010
  Serious: Yes (Other)
  Sender: FDA-Public Use
  Company Number: US-ALLERGAN-0704630US

PATIENT
  Sex: Male

DRUGS (7)
  1. ALPHAGAN P [Suspect]
     Indication: GLAUCOMA
     Dosage: UNK, UNK
     Route: 047
     Dates: start: 20070201
  2. COUMADIN [Concomitant]
     Indication: ANTICOAGULANT THERAPY
  3. GLUCOTROL [Concomitant]
     Indication: DRUG USE FOR UNKNOWN INDICATION
  4. LISINOPRIL [Concomitant]
     Indication: DRUG USE FOR UNKNOWN INDICATION
  5. LANTUS [Concomitant]
     Indication: DRUG USE FOR UNKNOWN INDICATION
  6. BUMEX [Concomitant]
     Indication: DRUG USE FOR UNKNOWN INDICATION
  7. ADVAIR DISKUS 100/50 [Concomitant]
     Indication: DRUG USE FOR UNKNOWN INDICATION

REACTIONS (1)
  - RENAL FAILURE ACUTE [None]
